FAERS Safety Report 10874845 (Version 1)
Quarter: 2015Q1

REPORT INFORMATION
  Report Type: Spontaneous
  Country: US (occurrence: US)
  Receive Date: 20150227
  Receipt Date: 20150227
  Transmission Date: 20150721
  Serious: Yes (Death)
  Sender: FDA-Public Use
  Company Number: US-BANPHARM-20153534

PATIENT
  Age: 30 Year
  Sex: Male

DRUGS (6)
  1. ALPRAZOLAM. [Suspect]
     Active Substance: ALPRAZOLAM
  2. DOXYLAMINE [Suspect]
     Active Substance: DOXYLAMINE
  3. DIPHENHYDRAMINE UNKNOWN PRODUCT [Suspect]
     Active Substance: DIPHENHYDRAMINE
  4. CLONAZEPAM. [Suspect]
     Active Substance: CLONAZEPAM
  5. METHADONE [Suspect]
     Active Substance: METHADONE HYDROCHLORIDE
  6. OXYCODONE [Suspect]
     Active Substance: OXYCODONE

REACTIONS (2)
  - Exposure via ingestion [None]
  - Drug abuse [Fatal]
